FAERS Safety Report 19486836 (Version 1)
Quarter: 2021Q3

REPORT INFORMATION
  Report Type: Spontaneous
  Country: PA (occurrence: PA)
  Receive Date: 20210702
  Receipt Date: 20210702
  Transmission Date: 20211014
  Serious: Yes (Death)
  Sender: FDA-Public Use
  Company Number: PA-TOLMAR, INC.-21PA028516

PATIENT
  Sex: Male

DRUGS (2)
  1. XTANDI [Concomitant]
     Active Substance: ENZALUTAMIDE
     Indication: PRODUCT USED FOR UNKNOWN INDICATION
     Dosage: 40 MILLIGRAM
  2. ELIGARD [Suspect]
     Active Substance: LEUPROLIDE ACETATE
     Indication: PROSTATE CANCER
     Dosage: 45 MILLIGRAM PER SQUARE METRE, CYCLIC
     Route: 058
     Dates: start: 20190117

REACTIONS (1)
  - Death [Fatal]
